FAERS Safety Report 16061848 (Version 1)
Quarter: 2019Q1

REPORT INFORMATION
  Report Type: Spontaneous
  Country: US (occurrence: US)
  Receive Date: 20190312
  Receipt Date: 20190312
  Transmission Date: 20190418
  Serious: Yes (Other)
  Sender: FDA-Public Use
  Company Number: US-ROCHE-2278361

PATIENT
  Age: 75 Year
  Sex: Female

DRUGS (2)
  1. RANIBIZUMAB. [Concomitant]
     Active Substance: RANIBIZUMAB
     Indication: AGE-RELATED MACULAR DEGENERATION
     Dosage: 0.5 MG/0.05 ML
     Route: 050
  2. BEVACIZUMAB. [Suspect]
     Active Substance: BEVACIZUMAB
     Indication: AGE-RELATED MACULAR DEGENERATION
     Route: 065

REACTIONS (1)
  - Iridocyclitis [Recovered/Resolved]
